FAERS Safety Report 17852116 (Version 1)
Quarter: 2020Q2

REPORT INFORMATION
  Report Type: Spontaneous
  Country: GB (occurrence: GB)
  Receive Date: 20200602
  Receipt Date: 20200602
  Transmission Date: 20200714
  Serious: Yes (Other)
  Sender: FDA-Public Use
  Company Number: NVSC2020GB151331

PATIENT
  Age: 10 Year
  Sex: Male
  Weight: 89.6 kg

DRUGS (1)
  1. SOMATROPIN. [Suspect]
     Active Substance: SOMATROPIN
     Indication: PRADER-WILLI SYNDROME
     Dosage: 1.7 MG, QD ((6MG/M2/WEEK))
     Route: 058
     Dates: start: 201311, end: 20200312

REACTIONS (4)
  - Circulatory collapse [Unknown]
  - Strabismus [Unknown]
  - Visual impairment [Unknown]
  - Idiopathic intracranial hypertension [Not Recovered/Not Resolved]

NARRATIVE: CASE EVENT DATE: 201911
